FAERS Safety Report 8869674 (Version 1)
Quarter: 2012Q4

REPORT INFORMATION
  Report Type: 
  Country: US (occurrence: US)
  Receive Date: 20121026
  Receipt Date: 20121026
  Transmission Date: 20130627
  Serious: No
  Sender: FDA-Public Use
  Company Number: US-AMGEN-USASP2012042770

PATIENT
  Age: 52 Year
  Sex: Female
  Weight: 84.35 kg

DRUGS (10)
  1. ENBREL [Suspect]
     Indication: PRODUCT USED FOR UNKNOWN INDICATION
     Dosage: 50 mg/ml, 2 times/wk for 3 months
     Route: 058
  2. RAMIPRIL [Concomitant]
     Dosage: 2.5 mg, UNK
  3. SYNTHROID [Concomitant]
     Dosage: 25 mcg
  4. METFORMIN [Concomitant]
     Dosage: 1000 mg, UNK
  5. OLUX E [Concomitant]
  6. HYDROCHLOROTH [Concomitant]
     Dosage: 25 mg, UNK
  7. VERAPAMIL [Concomitant]
     Dosage: 120 mg, UNK
  8. PROPRANOLOL [Concomitant]
     Dosage: 10 mg, UNK
  9. MULTIVITAMINS, PLAIN [Concomitant]
     Dosage: UNK
  10. SORIATANE [Concomitant]
     Dosage: 10 mg, UNK

REACTIONS (3)
  - Device malfunction [Unknown]
  - Injection site erythema [Unknown]
  - Injection site discomfort [Unknown]
